FAERS Safety Report 7883071-X (Version None)
Quarter: 2011Q4

REPORT INFORMATION
  Report Type: 
  Country: None (occurrence: None)
  Receive Date: 20111102
  Receipt Date: 20111024
  Transmission Date: 20120403
  Serious: No
  Sender: FDA-Public Use
  Company Number: US-BIOGENIDEC-2011BI036659

PATIENT
  Age: 60 Year
  Sex: Male

DRUGS (1)
  1. TYSABRI [Suspect]
     Indication: MULTIPLE SCLEROSIS
     Route: 042
     Dates: start: 20081124

REACTIONS (4)
  - RASH PRURITIC [None]
  - RASH [None]
  - ABDOMINAL DISCOMFORT [None]
  - DIARRHOEA [None]
